FAERS Safety Report 23991382 (Version 1)
Quarter: 2024Q2

REPORT INFORMATION
  Report Type: Spontaneous
  Country: US (occurrence: US)
  Receive Date: 20240619
  Receipt Date: 20240619
  Transmission Date: 20240715
  Serious: No
  Sender: FDA-Public Use
  Company Number: US-PFIZER INC-PV202400079933

PATIENT
  Age: 63 Year

DRUGS (1)
  1. PAXLOVID [Suspect]
     Active Substance: NIRMATRELVIR\RITONAVIR
     Indication: COVID-19 treatment

REACTIONS (3)
  - Dysgeusia [Unknown]
  - Pyrexia [Unknown]
  - Nasal congestion [Not Recovered/Not Resolved]
